FAERS Safety Report 7781080-2 (Version None)
Quarter: 2011Q3

REPORT INFORMATION
  Report Type: 
  Country: None (occurrence: None)
  Receive Date: 20110927
  Receipt Date: 20110923
  Transmission Date: 20111222
  Serious: Yes (Death, Hospitalization, Other)
  Sender: FDA-Public Use
  Company Number: PHFR2011GB02485

PATIENT
  Sex: Male

DRUGS (4)
  1. VENLAFAXINE HYDROCHLORIDE [Concomitant]
     Indication: DEPRESSION
     Dosage: 150 MG, QD
     Route: 048
     Dates: start: 20080319
  2. CLOZAPINE [Suspect]
     Indication: SCHIZOPHRENIA, PARANOID TYPE
     Dosage: 350 MG/ MORNING AND 400 MG/ EVENING
     Route: 048
     Dates: start: 20000101
  3. BECLOMETHASONE DIPROPIONATE [Concomitant]
     Indication: SEASONAL ALLERGY
     Dosage: 2 PUFFS, BID
     Route: 045
     Dates: start: 20010620
  4. PROCYCLIDINE HYDROCHLORIDE 2MG TAB [Concomitant]
     Indication: ADVERSE DRUG REACTION
     Dosage: 10 MG, BID
     Route: 048
     Dates: start: 20010111

REACTIONS (6)
  - LIVER INJURY [None]
  - CARDIOMEGALY [None]
  - SEPSIS [None]
  - ENDOCARDITIS BACTERIAL [None]
  - CARDIAC VALVE DISEASE [None]
  - BACK PAIN [None]
